FAERS Safety Report 14270491 (Version 1)
Quarter: 2017Q4

REPORT INFORMATION
  Report Type: Spontaneous
  Country: ID (occurrence: ID)
  Receive Date: 20171211
  Receipt Date: 20171211
  Transmission Date: 20180321
  Serious: Yes (Other)
  Sender: FDA-Public Use
  Company Number: ID-OTSUKA-2016_007431

PATIENT
  Age: 21 Year
  Sex: Male

DRUGS (10)
  1. RIKLONA [Concomitant]
     Indication: AKATHISIA
     Dosage: UNK
     Route: 065
     Dates: start: 20160316, end: 20160328
  2. OLANZAPINE. [Concomitant]
     Active Substance: OLANZAPINE
     Indication: HALLUCINATION
     Dosage: 10 MG, UNK
     Route: 048
     Dates: start: 20160323, end: 20160328
  3. CLONAZEPAM. [Concomitant]
     Active Substance: CLONAZEPAM
     Indication: AKATHISIA
     Dosage: 2 MG, TID
     Route: 048
     Dates: start: 20160316, end: 20160328
  4. PROPRANOLOL [Concomitant]
     Active Substance: PROPRANOLOL HYDROCHLORIDE
     Indication: AGITATION
     Dosage: UNK
     Route: 065
     Dates: start: 20160313, end: 20160328
  5. ZYPREXA [Concomitant]
     Active Substance: OLANZAPINE
     Indication: HALLUCINATION
     Dosage: UNK
     Route: 065
     Dates: start: 20160323, end: 20160328
  6. ZYPREXA [Concomitant]
     Active Substance: OLANZAPINE
     Indication: DELUSION
  7. OLANZAPINE. [Concomitant]
     Active Substance: OLANZAPINE
     Indication: DELUSION
  8. ABILIFY [Suspect]
     Active Substance: ARIPIPRAZOLE
     Indication: SCHIZOPHRENIA
     Dosage: 15 MG, QD
     Route: 048
     Dates: start: 20160306, end: 20160316
  9. TRIHEXYPHENIDYL [Concomitant]
     Active Substance: TRIHEXYPHENIDYL
     Indication: EXTRAPYRAMIDAL DISORDER
     Dosage: UNK
     Route: 065
     Dates: start: 20160306, end: 20160328
  10. DIAZEPAM. [Concomitant]
     Active Substance: DIAZEPAM
     Indication: AGITATION
     Dosage: UNK
     Route: 065
     Dates: start: 20160316, end: 20160316

REACTIONS (5)
  - Agitation [Recovered/Resolved]
  - Weight increased [Unknown]
  - Delusion [Recovered/Resolved]
  - Akathisia [Recovered/Resolved]
  - Hallucination [Recovered/Resolved]
